FAERS Safety Report 10298274 (Version 1)
Quarter: 2014Q3

REPORT INFORMATION
  Report Type: Spontaneous
  Country: US (occurrence: US)
  Receive Date: 20140711
  Receipt Date: 20140711
  Transmission Date: 20150326
  Serious: No
  Sender: FDA-Public Use
  Company Number: US-GLAXOSMITHKLINE-A1065597A

PATIENT
  Age: 75 Year
  Sex: Female

DRUGS (4)
  1. FLOVENT [Suspect]
     Active Substance: FLUTICASONE PROPIONATE
     Indication: ASTHMA
     Dosage: 1PUFF TWICE PER DAY
     Route: 055
     Dates: start: 20131231
  2. FISH OIL [Concomitant]
     Active Substance: FISH OIL
  3. LYRICA [Concomitant]
     Active Substance: PREGABALIN
  4. MULTIPLE MEDICATIONS [Concomitant]
     Active Substance: UNSPECIFIED INGREDIENT

REACTIONS (10)
  - Dry mouth [Unknown]
  - Dry throat [Unknown]
  - Cough [Unknown]
  - Sneezing [Unknown]
  - Dyspnoea [Unknown]
  - Toothache [Unknown]
  - Nasal congestion [Unknown]
  - Dysphonia [Unknown]
  - Head discomfort [Unknown]
  - Choking sensation [Unknown]

NARRATIVE: CASE EVENT DATE: 201403
